FAERS Safety Report 9207344 (Version 2)
Quarter: 2014Q1

REPORT INFORMATION
  Report Type: Spontaneous
  Country: US (occurrence: US)
  Receive Date: 20130403
  Receipt Date: 20140121
  Transmission Date: 20141002
  Serious: Yes (Other)
  Sender: FDA-Public Use
  Company Number: US-BAYER-2013-039759

PATIENT
  Age: 24 Year
  Sex: Female

DRUGS (8)
  1. YAZ [Suspect]
     Dosage: UNK
     Dates: start: 200708, end: 201109
  2. YASMIN [Suspect]
  3. OCELLA [Suspect]
  4. DESONIDE [Concomitant]
     Dosage: 0.05 %, UNK
  5. OXYCODONE/APAP [Concomitant]
     Dosage: 5-325 MG
  6. LEVAQUIN [Concomitant]
     Dosage: 500 MG, UNK
  7. LORAZEPAM [Concomitant]
     Dosage: 0.5 MG, UNK
  8. URSODIOL [Concomitant]
     Dosage: 300 MG, UNK

REACTIONS (4)
  - Cholelithiasis [None]
  - Cholecystitis [None]
  - Injury [None]
  - Pain [None]
